FAERS Safety Report 16835829 (Version 1)
Quarter: 2019Q3

REPORT INFORMATION
  Report Type: Report from Study
  Country: US (occurrence: US)
  Receive Date: 20190920
  Receipt Date: 20190920
  Transmission Date: 20191005
  Serious: Yes (Life-Threatening)
  Sender: FDA-Public Use
  Company Number: US-GLAXOSMITHKLINE-2019-TSO02881-US

PATIENT
  Age: 64 Year
  Sex: Female

DRUGS (1)
  1. NIRAPARIB [Suspect]
     Active Substance: NIRAPARIB
     Dosage: 200 MG, QPM WITH FOOD
     Route: 048
     Dates: start: 20190809

REACTIONS (5)
  - White blood cell count decreased [Not Recovered/Not Resolved]
  - Platelet count decreased [Recovering/Resolving]
  - Constipation [Unknown]
  - Red blood cell count decreased [Unknown]
  - Dry mouth [Unknown]

NARRATIVE: CASE EVENT DATE: 201908
